FAERS Safety Report 8339772-2 (Version None)
Quarter: 2012Q2

REPORT INFORMATION
  Report Type: 
  Country: None (occurrence: None)
  Receive Date: 20120507
  Receipt Date: 20120502
  Transmission Date: 20120825
  Serious: Yes (Life-Threatening, Hospitalization)
  Sender: FDA-Public Use
  Company Number: CA-ASTRAZENECA-2012SE28337

PATIENT
  Sex: Female

DRUGS (2)
  1. REOPRO [Concomitant]
  2. BRILINTA [Suspect]
     Indication: ACUTE CORONARY SYNDROME
     Route: 048
     Dates: start: 20120101

REACTIONS (2)
  - HAEMORRHAGE [None]
  - VENTRICULAR ASYSTOLE [None]
